FAERS Safety Report 5346665-1 (Version None)
Quarter: 2007Q2

REPORT INFORMATION
  Report Type: 
  Country: None (occurrence: None)
  Receive Date: 20070605
  Receipt Date: 20070528
  Transmission Date: 20071010
  Serious: Yes (Other)
  Sender: FDA-Public Use
  Company Number: BR-PFIZER INC-2007042788

PATIENT
  Age: 84 Year
  Sex: Female

DRUGS (3)
  1. FRONTAL [Suspect]
     Indication: ANXIETY
     Dosage: DAILY DOSE:.5MG
     Route: 048
  2. FRONTAL [Suspect]
     Indication: RESTLESSNESS
  3. LEXAPRO [Concomitant]
     Indication: DEPRESSION
     Route: 048

REACTIONS (6)
  - AMNESIA [None]
  - BALANCE DISORDER [None]
  - DRUG INEFFECTIVE [None]
  - FALL [None]
  - MALAISE [None]
  - SOMNOLENCE [None]
